FAERS Safety Report 25674093 (Version 1)
Quarter: 2025Q3

REPORT INFORMATION
  Report Type: Other
  Country: US (occurrence: US)
  Receive Date: 20250813
  Receipt Date: 20250813
  Transmission Date: 20251021
  Serious: Yes (Hospitalization, Other)
  Sender: APPCO PHARMA LLC
  Company Number: US-Appco Pharma LLC-2182388

PATIENT

DRUGS (6)
  1. VENLAFAXINE [Suspect]
     Active Substance: VENLAFAXINE HYDROCHLORIDE
     Indication: Product used for unknown indication
  2. QUETIAPINE [Suspect]
     Active Substance: QUETIAPINE
  3. ALCOHOL [Suspect]
     Active Substance: ALCOHOL
  4. COCAINE HYDROCHLORIDE [Suspect]
     Active Substance: COCAINE HYDROCHLORIDE
  5. DIAZEPAM [Suspect]
     Active Substance: DIAZEPAM
  6. LAMOTRIGINE [Suspect]
     Active Substance: LAMOTRIGINE

REACTIONS (3)
  - Intentional overdose [Unknown]
  - Toxicity to various agents [Recovered/Resolved]
  - Anticholinergic syndrome [Recovered/Resolved]
